FAERS Safety Report 24235891 (Version 1)
Quarter: 2024Q3

REPORT INFORMATION
  Report Type: Spontaneous
  Country: CN (occurrence: CN)
  Receive Date: 20240822
  Receipt Date: 20240822
  Transmission Date: 20241017
  Serious: Yes (Hospitalization)
  Sender: BEIGENE
  Company Number: CN-BEIGENE-BGN-2024-012733

PATIENT

DRUGS (1)
  1. TISLELIZUMAB [Suspect]
     Active Substance: TISLELIZUMAB
     Indication: Squamous cell carcinoma of the tongue
     Dosage: 200 MILLIGRAM
     Dates: start: 202304, end: 202306

REACTIONS (2)
  - Cheilitis [Recovering/Resolving]
  - Angular cheilitis [Recovering/Resolving]

NARRATIVE: CASE EVENT DATE: 20230101
